FAERS Safety Report 20019092 (Version 2)
Quarter: 2022Q4

REPORT INFORMATION
  Report Type: Spontaneous
  Country: US (occurrence: US)
  Receive Date: 20211101
  Receipt Date: 20221204
  Transmission Date: 20230112
  Serious: Yes (Life-Threatening, Hospitalization, Other)
  Sender: FDA-Public Use
  Company Number: US-LUPIN PHARMACEUTICALS INC.-2021-21050

PATIENT
  Age: 55 Year
  Sex: Female

DRUGS (9)
  1. CALCIUM [Suspect]
     Active Substance: CALCIUM
     Indication: Cardiogenic shock
     Dosage: HIGH-DOSE
     Route: 065
  2. CARVEDILOL [Suspect]
     Active Substance: CARVEDILOL
     Indication: Product used for unknown indication
     Dosage: 108 DOSAGE FORM, QD
     Route: 048
  3. SALINE [Suspect]
     Active Substance: SODIUM CHLORIDE
     Indication: Cardiogenic shock
     Dosage: 3 LITER
     Route: 065
  4. ATROPINE [Suspect]
     Active Substance: ATROPINE
     Indication: Cardiogenic shock
     Dosage: UNK
     Route: 065
  5. GLUCAGON [Suspect]
     Active Substance: GLUCAGON
     Indication: Cardiogenic shock
     Dosage: UNK
     Route: 065
  6. NOREPINEPHRINE [Suspect]
     Active Substance: NOREPINEPHRINE
     Indication: Cardiogenic shock
     Dosage: UNK
     Route: 065
  7. EPINEPHRINE [Suspect]
     Active Substance: EPINEPHRINE
     Indication: Cardiogenic shock
     Dosage: UNK
     Route: 065
  8. INSULIN NOS [Suspect]
     Active Substance: INSULIN NOS
     Indication: Cardiogenic shock
     Dosage: HIGH-DOSE
     Route: 065
  9. DEXTROSE [Suspect]
     Active Substance: DEXTROSE
     Indication: Cardiogenic shock
     Dosage: UNK
     Route: 065

REACTIONS (15)
  - Cardiogenic shock [Recovering/Resolving]
  - Suicide attempt [Unknown]
  - Mental status changes [Recovering/Resolving]
  - Toxicity to various agents [Unknown]
  - Intentional overdose [Unknown]
  - Drug ineffective for unapproved indication [Unknown]
  - Bradycardia [Recovering/Resolving]
  - Electrocardiogram QRS complex shortened [Recovering/Resolving]
  - Lethargy [Recovering/Resolving]
  - Asthenia [Recovering/Resolving]
  - Hypotension [Recovering/Resolving]
  - Hypocalcaemia [Recovering/Resolving]
  - Hypoalbuminaemia [Recovering/Resolving]
  - Atrioventricular block first degree [Recovering/Resolving]
  - Off label use [Unknown]
